FAERS Safety Report 25589293 (Version 2)
Quarter: 2025Q3

REPORT INFORMATION
  Report Type: Report from Study
  Country: JP (occurrence: JP)
  Receive Date: 20250722
  Receipt Date: 20250806
  Transmission Date: 20251020
  Serious: Yes (Hospitalization)
  Sender: ROCHE
  Company Number: JP-CHUGAI-2025022902

PATIENT
  Age: 61 Year
  Sex: Female
  Weight: 105.9 kg

DRUGS (16)
  1. PIASKY [Suspect]
     Active Substance: CROVALIMAB-AKKZ
     Indication: Paroxysmal nocturnal haemoglobinuria
     Route: 042
     Dates: start: 20240822, end: 20240822
  2. PIASKY [Suspect]
     Active Substance: CROVALIMAB-AKKZ
     Route: 058
     Dates: start: 20240823
  3. PIASKY [Suspect]
     Active Substance: CROVALIMAB-AKKZ
     Route: 058
     Dates: start: 20240906
  4. PIASKY [Suspect]
     Active Substance: CROVALIMAB-AKKZ
     Route: 058
     Dates: start: 20240913
  5. PIASKY [Suspect]
     Active Substance: CROVALIMAB-AKKZ
     Route: 058
     Dates: start: 20240920
  6. PIASKY [Suspect]
     Active Substance: CROVALIMAB-AKKZ
     Route: 058
     Dates: start: 20241004
  7. PIASKY [Suspect]
     Active Substance: CROVALIMAB-AKKZ
     Route: 058
     Dates: start: 20241018
  8. PIASKY [Suspect]
     Active Substance: CROVALIMAB-AKKZ
     Route: 058
     Dates: start: 20241101
  9. PIASKY [Suspect]
     Active Substance: CROVALIMAB-AKKZ
     Route: 058
     Dates: start: 20240830
  10. ELDECALCITOL [Suspect]
     Active Substance: ELDECALCITOL
     Indication: Prophylaxis
     Route: 048
  11. SULFAMETHOXAZOLE\TRIMETHOPRIM [Concomitant]
     Active Substance: SULFAMETHOXAZOLE\TRIMETHOPRIM
     Indication: Infection prophylaxis
     Route: 065
  12. ESOMEPRAZOLE MAGNESIUM [Concomitant]
     Active Substance: ESOMEPRAZOLE MAGNESIUM
     Indication: Prophylaxis
     Route: 065
  13. FEBUXOSTAT [Concomitant]
     Active Substance: FEBUXOSTAT
     Route: 065
  14. PREDONINE [Concomitant]
     Active Substance: PREDNISOLONE
     Indication: Paroxysmal nocturnal haemoglobinuria
     Route: 065
  15. NEORAL [Concomitant]
     Active Substance: CYCLOSPORINE
     Indication: Paroxysmal nocturnal haemoglobinuria
     Route: 065
  16. ELTROMBOPAG OLAMINE [Concomitant]
     Active Substance: ELTROMBOPAG OLAMINE
     Indication: Paroxysmal nocturnal haemoglobinuria
     Route: 065
     Dates: start: 20220129

REACTIONS (2)
  - Transfusion [Recovered/Resolved]
  - Off label use [Unknown]

NARRATIVE: CASE EVENT DATE: 20240920
